FAERS Safety Report 9059204 (Version 1)
Quarter: 2013Q1

REPORT INFORMATION
  Report Type: Spontaneous
  Country: US (occurrence: US)
  Receive Date: 20130211
  Receipt Date: 20130211
  Transmission Date: 20140127
  Serious: No
  Sender: FDA-Public Use
  Company Number: US-BRISTOL-MYERS SQUIBB COMPANY-17228123

PATIENT
  Age: 50 Year
  Sex: Male

DRUGS (3)
  1. METFORMIN HCL [Suspect]
     Route: 065
  2. APIDRA SOLOSTAR [Suspect]
     Dosage: 1DF:35 UNITS
     Route: 058
     Dates: start: 2010
  3. LANTUS [Suspect]
     Dosage: INJECTION SOLUTION,?1DF= 100 IU/ML
     Route: 051

REACTIONS (1)
  - Blood glucose increased [Unknown]
